FAERS Safety Report 14532850 (Version 3)
Quarter: 2018Q4

REPORT INFORMATION
  Report Type: Report from Study
  Country: CA (occurrence: CA)
  Receive Date: 20180214
  Receipt Date: 20181212
  Transmission Date: 20190204
  Serious: Yes (Other)
  Sender: FDA-Public Use
  Company Number: CA-UCBSA-2017046717

PATIENT
  Age: 28 Year
  Sex: Female
  Weight: 73 kg

DRUGS (2)
  1. CERTOLIZUMAB PEGOL RA [Suspect]
     Active Substance: CERTOLIZUMAB PEGOL
     Indication: RHEUMATOID ARTHRITIS
     Dosage: 400 MG, EV 2 WEEKS(QOW) X 3 TIMES
     Route: 058
     Dates: start: 20170131, end: 20170226
  2. CERTOLIZUMAB PEGOL RA [Suspect]
     Active Substance: CERTOLIZUMAB PEGOL
     Dosage: 200 MG, EV 2 WEEKS(QOW)
     Route: 058
     Dates: start: 20170312

REACTIONS (6)
  - Pre-eclampsia [Unknown]
  - Exposure during pregnancy [Unknown]
  - Postpartum haemorrhage [Unknown]
  - Amniotic fluid volume decreased [Unknown]
  - Breast feeding [Unknown]
  - Placental disorder [Unknown]

NARRATIVE: CASE EVENT DATE: 2017
